FAERS Safety Report 5893161-9 (Version None)
Quarter: 2008Q3

REPORT INFORMATION
  Report Type: 
  Country: None (occurrence: None)
  Receive Date: 20080923
  Receipt Date: 20070904
  Transmission Date: 20090109
  Serious: No
  Sender: FDA-Public Use
  Company Number: US-ASTRAZENECA-2007UW20763

PATIENT
  Age: 65 Year
  Sex: Male
  Weight: 106.8 kg

DRUGS (8)
  1. SEROQUEL [Suspect]
     Route: 048
  2. LEXAPRO [Concomitant]
  3. PROCARDIA XL [Concomitant]
  4. VASOTEC [Concomitant]
  5. MAXZIDE [Concomitant]
  6. ZETIA [Concomitant]
  7. ASPIRIN [Concomitant]
  8. METOPROLOL TARTRATE [Concomitant]

REACTIONS (5)
  - ANXIETY [None]
  - ASTHENIA [None]
  - MOOD SWINGS [None]
  - NERVOUSNESS [None]
  - TREMOR [None]
